FAERS Safety Report 9787637 (Version 1)
Quarter: 2013Q4

REPORT INFORMATION
  Report Type: Spontaneous
  Country: FR (occurrence: None)
  Receive Date: 20131226
  Receipt Date: 20131226
  Transmission Date: 20140711
  Serious: Yes (Other)
  Sender: FDA-Public Use
  Company Number: SYM-2013-14174

PATIENT
  Age: 80 Year
  Sex: Female

DRUGS (14)
  1. METRONIDAZOLE [Suspect]
     Indication: CLOSTRIDIUM DIFFICILE COLITIS
     Route: 048
     Dates: start: 20131123, end: 20131127
  2. TARGOCID [Suspect]
     Indication: SEPTIC SHOCK
     Route: 042
     Dates: start: 20131124, end: 20131127
  3. AMIKACIN [Suspect]
     Indication: SEPTIC SHOCK
     Dates: start: 20131123, end: 20131127
  4. CEFTRIAXONE [Suspect]
     Indication: PYELONEPHRITIS
     Route: 042
     Dates: end: 20131127
  5. EUPANTOL [Suspect]
     Indication: PROPHYLAXIS
     Dates: start: 20131123, end: 20131127
  6. LASILIX(FUROSEMIDE)(FUROSEMIDE) [Concomitant]
  7. TARDYPERON(FERROUS SULFATE)(FERROUS SULFATE) [Concomitant]
  8. CERIS(TROSPIUM CHLORIDE)(TROSPIM CHLORIDE) [Concomitant]
  9. DOLIPRANE(PARACETAMOL)(PARACETAMOL) [Concomitant]
  10. SIMVASTATIN(SIMVASTATIN)(SIMVASTATIN) [Concomitant]
  11. VOLTARENE(DICLOFENACE SODIUM)(DICLOFRENACE SODIUM) [Concomitant]
  12. TAREG(VALSARTAN)(VALSARTAN) [Concomitant]
  13. GAVISCON(GAVISCON/01736201/) MAGNEISUM CARBONATE, ALUMINIUM HYDROXIDE) [Concomitant]
  14. DOMPERIDONE (DOMPERIDONE) [Suspect]

REACTIONS (6)
  - Vomiting [None]
  - Diarrhoea [None]
  - Pyrexia [None]
  - General physical health deterioration [None]
  - Agranulocytosis [None]
  - Thrombocytopenia [None]
